FAERS Safety Report 6122024-9 (Version None)
Quarter: 2009Q1

REPORT INFORMATION
  Report Type: 
  Country: None (occurrence: None)
  Receive Date: 20090316
  Receipt Date: 20090303
  Transmission Date: 20090719
  Serious: Yes (Hospitalization)
  Sender: FDA-Public Use
  Company Number: 2009030009

PATIENT
  Age: 17 Year
  Sex: Male

DRUGS (4)
  1. TUSSI-12D [Suspect]
     Indication: INFLUENZA
     Dosage: 2 TABLET (1 TABLET, 2 IN 1 D)
     Dates: start: 20090224, end: 20090225
  2. ZOLOFT [Concomitant]
  3. ADVAIR (FLUTICASONE PROPIONATE SALMETEROL) [Concomitant]
  4. SINGULAIR [Concomitant]

REACTIONS (5)
  - CONVULSION [None]
  - DIZZINESS [None]
  - ERYTHEMA [None]
  - NAUSEA [None]
  - VOMITING [None]
